FAERS Safety Report 8558854 (Version 4)
Quarter: 2014Q3

REPORT INFORMATION
  Report Type: Spontaneous
  Country: US (occurrence: US)
  Receive Date: 20120507
  Receipt Date: 20140714
  Transmission Date: 20150326
  Serious: Yes (Hospitalization, Disabling, Other)
  Sender: FDA-Public Use
  Company Number: US-009507513-2011SP056191

PATIENT
  Sex: Female
  Weight: 68.4 kg

DRUGS (4)
  1. TRAZODONE HYDROCHLORIDE. [Suspect]
     Active Substance: TRAZODONE HYDROCHLORIDE
     Indication: MOOD SWINGS
  2. CELEXA [Concomitant]
     Active Substance: CITALOPRAM HYDROBROMIDE
     Indication: PRODUCT USED FOR UNKNOWN INDICATION
     Dates: start: 200805
  3. TRAZODONE HYDROCHLORIDE. [Suspect]
     Active Substance: TRAZODONE HYDROCHLORIDE
     Indication: SUICIDAL IDEATION
     Dates: start: 2008, end: 20080818
  4. NUVARING [Suspect]
     Active Substance: ETHINYL ESTRADIOL\ETONOGESTREL
     Indication: CONTRACEPTION
     Dates: start: 200505, end: 20081215

REACTIONS (12)
  - Mood swings [Unknown]
  - Somnolence [Unknown]
  - Upper respiratory tract infection [Unknown]
  - Suicidal ideation [Unknown]
  - Bipolar disorder [Unknown]
  - Rhinitis allergic [Not Recovered/Not Resolved]
  - Arthropod bite [Unknown]
  - Abscess [Unknown]
  - Pulmonary embolism [Recovered/Resolved]
  - Anxiety [Unknown]
  - Cellulitis [Unknown]
  - Staphylococcal infection [Unknown]

NARRATIVE: CASE EVENT DATE: 200604
